FAERS Safety Report 6279373-3 (Version None)
Quarter: 2009Q3

REPORT INFORMATION
  Report Type: 
  Country: None (occurrence: None)
  Receive Date: 20090723
  Receipt Date: 20090716
  Transmission Date: 20100115
  Serious: Yes (Hospitalization)
  Sender: FDA-Public Use
  Company Number: IT-AVENTIS-200917113GDDC

PATIENT
  Age: 31 Year
  Sex: Female

DRUGS (3)
  1. LEFLUNOMIDE [Suspect]
  2. LEFLUNOMIDE [Suspect]
     Route: 048
  3. PREDNISOLONE [Concomitant]
     Dosage: DOSE: UNK

REACTIONS (1)
  - SKIN ULCER [None]
